FAERS Safety Report 5002935-8 (Version None)
Quarter: 2006Q2

REPORT INFORMATION
  Report Type: 
  Country: None (occurrence: None)
  Receive Date: 20060516
  Receipt Date: 20060511
  Transmission Date: 20061013
  Serious: Yes (Other)
  Sender: FDA-Public Use
  Company Number: US-GLAXOSMITHKLINE-A0605234A

PATIENT
  Age: 38 Year
  Sex: Male

DRUGS (4)
  1. WELLBUTRIN XL [Suspect]
     Indication: DEPRESSION
     Dosage: 150MG PER DAY
     Route: 048
     Dates: start: 20060430
  2. EFFEXOR XR [Suspect]
     Indication: DEPRESSION
     Dosage: 75MG PER DAY
     Route: 048
     Dates: start: 20051201, end: 20060301
  3. SYNTHROID [Concomitant]
  4. PREVACID [Concomitant]

REACTIONS (5)
  - ANGER [None]
  - CRYING [None]
  - DEMENTIA [None]
  - DRUG INEFFECTIVE [None]
  - IRRITABILITY [None]
